FAERS Safety Report 8823358 (Version 2)
Quarter: 2012Q4

REPORT INFORMATION
  Report Type: 
  Country: US (occurrence: US)
  Receive Date: 20121003
  Receipt Date: 20121016
  Transmission Date: 20130627
  Serious: Yes (Other)
  Sender: FDA-Public Use
  Company Number: US-ALEXION-A201201855

PATIENT
  Age: 76 Year
  Sex: Male
  Weight: 57.6 kg

DRUGS (4)
  1. SOLIRIS 300MG [Suspect]
     Indication: PAROXYSMAL NOCTURNAL HAEMOGLOBINURIA
     Dosage: 600 mg, qw
     Route: 042
     Dates: start: 20120301, end: 20120328
  2. SOLIRIS 300MG [Suspect]
     Dosage: 900 mg, q2w
     Dates: start: 20120329
  3. GABAPENTIN [Concomitant]
     Indication: BACK PAIN
     Dosage: UNK, bid
     Route: 048
  4. OXYCODONE HYDROCHLORIDE [Concomitant]
     Indication: BACK PAIN
     Dosage: 1-2 tabs, tid
     Route: 048

REACTIONS (2)
  - Stent malfunction [Not Recovered/Not Resolved]
  - Aortic stenosis [Not Recovered/Not Resolved]
